FAERS Safety Report 5411762-9 (Version None)
Quarter: 2007Q3

REPORT INFORMATION
  Report Type: 
  Country: None (occurrence: None)
  Receive Date: 20070813
  Receipt Date: 20070804
  Transmission Date: 20080115
  Serious: Yes (Disabling, Other)
  Sender: FDA-Public Use
  Company Number: PHEH2007US10792

PATIENT
  Age: 50 Year
  Sex: Female

DRUGS (1)
  1. ZELNORM [Suspect]
     Indication: IRRITABLE BOWEL SYNDROME
     Dosage: UNK, UNK
     Route: 048
     Dates: start: 20040101, end: 20060101

REACTIONS (6)
  - DEPRESSION [None]
  - FIBROMYALGIA [None]
  - GASTRIC HAEMORRHAGE [None]
  - NERVOUS SYSTEM DISORDER [None]
  - PAIN [None]
  - PANIC ATTACK [None]
